FAERS Safety Report 9303226 (Version 1)
Quarter: 2013Q2

REPORT INFORMATION
  Report Type: Spontaneous
  Country: US (occurrence: US)
  Receive Date: 20130522
  Receipt Date: 20130522
  Transmission Date: 20140414
  Serious: Yes (Other)
  Sender: FDA-Public Use
  Company Number: US-JNJFOC-20130506587

PATIENT
  Sex: Male

DRUGS (2)
  1. ROGAINE UNSPECIFIED INGREDIENT [Suspect]
     Route: 061
  2. ROGAINE UNSPECIFIED INGREDIENT [Suspect]
     Indication: PRODUCT USED FOR UNKNOWN INDICATION
     Route: 061

REACTIONS (1)
  - Retinopathy [Unknown]
